FAERS Safety Report 10971987 (Version 1)
Quarter: 2015Q1

REPORT INFORMATION
  Report Type: Spontaneous
  Country: US (occurrence: None)
  Receive Date: 20150330
  Receipt Date: 20150330
  Transmission Date: 20150721
  Serious: Yes (Congenital Anomaly)
  Sender: FDA-Public Use
  Company Number: None

PATIENT
  Age: 38 Year
  Sex: Female
  Weight: 124.74 kg

DRUGS (8)
  1. IRON [Concomitant]
     Active Substance: IRON
  2. CIPRO [Suspect]
     Active Substance: CIPROFLOXACIN HYDROCHLORIDE
  3. PATAPRAZOLE [Concomitant]
  4. MAGNISUM OXIDE [Concomitant]
  5. FLAGYL [Suspect]
     Active Substance: METRONIDAZOLE\METRONIDAZOLE HYDROCHLORIDE
     Indication: INFECTION
     Dosage: 500  14 TABS
     Route: 048
     Dates: start: 20150301, end: 20150304
  6. BACTRIM [Suspect]
     Active Substance: SULFAMETHOXAZOLE\TRIMETHOPRIM
  7. B6 [Concomitant]
     Active Substance: PYRIDOXINE HYDROCHLORIDE
  8. MULTIVITAMINS [Concomitant]
     Active Substance: VITAMINS

REACTIONS (3)
  - Urinary tract infection [None]
  - Uterine leiomyoma [None]
  - Fungal infection [None]

NARRATIVE: CASE EVENT DATE: 20140101
